FAERS Safety Report 9794407 (Version 2)
Quarter: 2014Q1

REPORT INFORMATION
  Report Type: Spontaneous
  Country: IT (occurrence: IT)
  Receive Date: 20140102
  Receipt Date: 20140102
  Transmission Date: 20141002
  Serious: Yes (Other)
  Sender: FDA-Public Use
  Company Number: IT-ELI_LILLY_AND_COMPANY-IT201311009620

PATIENT
  Age: 79 Year
  Sex: Female

DRUGS (1)
  1. FORSTEO [Suspect]
     Indication: OSTEOPOROSIS
     Dosage: 1 DF, QD
     Route: 058
     Dates: start: 20131101, end: 20131110

REACTIONS (4)
  - Syncope [Recovered/Resolved]
  - Paraesthesia [Recovered/Resolved]
  - Tachycardia [Recovered/Resolved]
  - Pain in extremity [Recovered/Resolved]
